FAERS Safety Report 9088995 (Version 1)
Quarter: 2013Q1

REPORT INFORMATION
  Report Type: Spontaneous
  Country: AT (occurrence: AT)
  Receive Date: 20130131
  Receipt Date: 20130131
  Transmission Date: 20140127
  Serious: Yes (Other)
  Sender: FDA-Public Use
  Company Number: PHHY2013AT007756

PATIENT
  Age: 6 Year
  Sex: Female
  Weight: 30.4 kg

DRUGS (1)
  1. CEFTRIAXONE SODIUM [Suspect]
     Indication: MENINGITIS MENINGOCOCCAL
     Dosage: 80 MG, BID
     Route: 042
     Dates: start: 20121008, end: 20121017

REACTIONS (1)
  - Cholelithiasis [Recovered/Resolved]
